FAERS Safety Report 17032585 (Version 1)
Quarter: 2019Q4

REPORT INFORMATION
  Report Type: Spontaneous
  Country: US (occurrence: US)
  Receive Date: 20191014
  Receipt Date: 20191014
  Transmission Date: 20200122
  Serious: Yes (Hospitalization)
  Sender: FDA-Public Use
  Company Number: None

PATIENT
  Age: 59 Year
  Sex: Female

DRUGS (5)
  1. SYNTHROID [Concomitant]
     Active Substance: LEVOTHYROXINE SODIUM
  2. NAPROXEN. [Concomitant]
     Active Substance: NAPROXEN
  3. HUMIRA [Suspect]
     Active Substance: ADALIMUMAB
     Indication: RHEUMATOID ARTHRITIS
     Route: 058
     Dates: start: 20170121
  4. CEPHALEXIN. [Concomitant]
     Active Substance: CEPHALEXIN
  5. OXYCODO/APA [Concomitant]

REACTIONS (3)
  - Maternal exposure timing unspecified [None]
  - Therapy cessation [None]
  - Maternal drugs affecting foetus [None]

NARRATIVE: CASE EVENT DATE: 20191007
